FAERS Safety Report 15917778 (Version 1)
Quarter: 2019Q1

REPORT INFORMATION
  Report Type: Spontaneous
  Country: US (occurrence: US)
  Receive Date: 20190205
  Receipt Date: 20190205
  Transmission Date: 20190417
  Serious: No
  Sender: FDA-Public Use
  Company Number: US-PFIZER INC-2019051601

PATIENT
  Age: 3 Year
  Sex: Male

DRUGS (1)
  1. GENOTROPIN [Suspect]
     Active Substance: SOMATROPIN
     Dosage: 0.4 MG, DAILY
     Dates: start: 20180829

REACTIONS (5)
  - Constipation [Unknown]
  - Blood thyroid stimulating hormone increased [Unknown]
  - Therapeutic response unexpected [Unknown]
  - Diarrhoea [Unknown]
  - Increased appetite [Unknown]

NARRATIVE: CASE EVENT DATE: 20180913
